FAERS Safety Report 7993185-1 (Version None)
Quarter: 2011Q4

REPORT INFORMATION
  Report Type: 
  Country: None (occurrence: None)
  Receive Date: 20111219
  Receipt Date: 20110920
  Transmission Date: 20120403
  Serious: No
  Sender: FDA-Public Use
  Company Number: US-ASTRAZENECA-2011SE56556

PATIENT
  Age: 70 Year
  Sex: Female

DRUGS (7)
  1. CRESTOR [Suspect]
     Indication: BLOOD CHOLESTEROL INCREASED
     Route: 048
     Dates: start: 20101201
  2. FAMOTIDINE [Concomitant]
  3. LISINOPRIL [Concomitant]
  4. COENZYME Q10 [Concomitant]
  5. CIPROFLOXACIN [Concomitant]
  6. CARVEDILOL [Concomitant]
  7. ASPIRIN [Concomitant]

REACTIONS (9)
  - TONGUE DRY [None]
  - FEELING ABNORMAL [None]
  - DRY SKIN [None]
  - MULTIPLE ALLERGIES [None]
  - DEPRESSION [None]
  - FRUSTRATION [None]
  - URINARY TRACT INFECTION [None]
  - ALOPECIA [None]
  - EYE DISORDER [None]
